FAERS Safety Report 7266495-3 (Version None)
Quarter: 2011Q1

REPORT INFORMATION
  Report Type: 
  Country: None (occurrence: None)
  Receive Date: 20110131
  Receipt Date: 20110124
  Transmission Date: 20110831
  Serious: Yes (Other)
  Sender: FDA-Public Use
  Company Number: IN-PFIZER INC-2011016814

PATIENT
  Age: 6 Year
  Sex: Female

DRUGS (1)
  1. PHENYTOIN [Suspect]
     Indication: EPILEPSY
     Dosage: 5 MG/KG, DAILY

REACTIONS (2)
  - MUSCULAR WEAKNESS [None]
  - HYPERPARATHYROIDISM SECONDARY [None]
